FAERS Safety Report 8943546 (Version 1)
Quarter: 2012Q4

REPORT INFORMATION
  Report Type: 
  Country: GB (occurrence: GB)
  Receive Date: 20121203
  Receipt Date: 20121203
  Transmission Date: 20130627
  Serious: Yes (Other)
  Sender: FDA-Public Use
  Company Number: PHHY2012GB109527

PATIENT
  Age: 17 Year
  Sex: Female
  Weight: 45.36 kg

DRUGS (6)
  1. AMOXICILLIN\CLAVULANATE POTASSIUM [Suspect]
     Indication: POSTOPERATIVE CARE
     Dosage: 3 DF, QD
     Route: 048
     Dates: start: 20121113, end: 20121117
  2. IBUPROFEN [Concomitant]
  3. PARACETAMOL [Concomitant]
  4. CODEINE PHOSPHATE [Concomitant]
  5. METRONIDAZOLE [Concomitant]
  6. METOCLOPRAMIDE [Concomitant]

REACTIONS (2)
  - Malaise [Recovered/Resolved with Sequelae]
  - Vomiting [Recovered/Resolved with Sequelae]
